FAERS Safety Report 9287712 (Version 1)
Quarter: 2013Q2

REPORT INFORMATION
  Report Type: Report from Study
  Country: DE (occurrence: DE)
  Receive Date: 20130514
  Receipt Date: 20130514
  Transmission Date: 20140414
  Serious: Yes (Other)
  Sender: FDA-Public Use
  Company Number: PHHY2013DE025246

PATIENT
  Sex: Female

DRUGS (3)
  1. GILENYA [Suspect]
     Indication: MULTIPLE SCLEROSIS
     Dosage: 0.5 MG, QD
     Route: 048
     Dates: start: 20130117, end: 20130304
  2. GILENYA [Suspect]
     Dosage: 0.5 MG, QOD
     Route: 048
     Dates: start: 20130305, end: 20130308
  3. CITALOPRAM [Concomitant]
     Indication: DEPRESSION
     Dosage: 10 MG, DAILY
     Route: 048
     Dates: start: 2011

REACTIONS (2)
  - Panic attack [Recovering/Resolving]
  - Hyperventilation [Unknown]
